FAERS Safety Report 16207472 (Version 1)
Quarter: 2019Q2

REPORT INFORMATION
  Report Type: Spontaneous
  Country: US (occurrence: US)
  Receive Date: 20190417
  Receipt Date: 20190417
  Transmission Date: 20190711
  Serious: No
  Sender: FDA-Public Use
  Company Number: US-PFIZER INC-2019157769

PATIENT
  Age: 62 Year
  Sex: Female
  Weight: 77.11 kg

DRUGS (2)
  1. XANAX [Suspect]
     Active Substance: ALPRAZOLAM
     Indication: MANIA
     Dosage: 1 MG, 4X/DAY
     Route: 048
  2. XANAX [Suspect]
     Active Substance: ALPRAZOLAM
     Indication: ANXIETY DISORDER

REACTIONS (1)
  - Drug tolerance [Not Recovered/Not Resolved]
